FAERS Safety Report 14198695 (Version 2)
Quarter: 2018Q1

REPORT INFORMATION
  Report Type: Spontaneous
  Country: US (occurrence: US)
  Receive Date: 20171117
  Receipt Date: 20180122
  Transmission Date: 20180508
  Serious: Yes (Death)
  Sender: FDA-Public Use
  Company Number: US-ROCHE-2024017

PATIENT
  Age: 70 Year
  Sex: Male

DRUGS (2)
  1. BACTRIM [Concomitant]
     Active Substance: SULFAMETHOXAZOLE\TRIMETHOPRIM
     Route: 065
  2. OCREVUS [Suspect]
     Active Substance: OCRELIZUMAB
     Indication: PRIMARY PROGRESSIVE MULTIPLE SCLEROSIS
     Dosage: TWO INFUSIONS
     Route: 042
     Dates: start: 201710

REACTIONS (3)
  - Urinary tract infection [Fatal]
  - Cardiogenic shock [Fatal]
  - Circulatory collapse [Fatal]
